FAERS Safety Report 6579189-4 (Version None)
Quarter: 2010Q1

REPORT INFORMATION
  Report Type: 
  Country: None (occurrence: None)
  Receive Date: 20100212
  Receipt Date: 20100203
  Transmission Date: 20100710
  Serious: Yes (Other)
  Sender: FDA-Public Use
  Company Number: JP-BAYER-200914334BYL

PATIENT
  Age: 63 Year
  Sex: Female
  Weight: 48 kg

DRUGS (24)
  1. NEXAVAR [Suspect]
     Indication: HEPATIC NEOPLASM MALIGNANT
     Dosage: UNIT DOSE: 200 MG
     Route: 048
     Dates: start: 20091006, end: 20091022
  2. NEXAVAR [Suspect]
     Dosage: TOTAL DAILY DOSE: 800 MG  UNIT DOSE: 200 MG
     Route: 048
     Dates: start: 20091022
  3. ADONA [Concomitant]
     Dosage: SINCE BEFORE ADMINISTRATION
     Route: 048
  4. TRANSAMIN [Concomitant]
     Dosage: SINCE BEFORE ADMINISTRATION
     Route: 048
  5. MEDICON [Concomitant]
     Dosage: SINCE BEFORE ADMINISTRATION
     Route: 048
  6. MYSLEE [Concomitant]
     Dosage: SINCE BEFORE ADMINISTRATION
     Route: 048
  7. ONON [Concomitant]
     Dosage: SINCE BEFORE ADMINISTRATION
     Route: 048
     Dates: end: 20091014
  8. SERENACE [Concomitant]
     Dosage: SINCE BEFORE ADMINISTRATION
     Route: 048
  9. PREDONINE [Concomitant]
     Dosage: SINCE BEFORE ADMINISTRATION
     Route: 048
  10. ALTAT [Concomitant]
     Dosage: SINCE BEFORE ADMINISTRATION
     Route: 048
  11. CODEINE SULFATE [Concomitant]
     Dosage: SINCE BEFORE ADMINISTRATION
     Route: 048
     Dates: end: 20091014
  12. OXYCONTIN [Concomitant]
     Route: 048
     Dates: start: 20091013
  13. KERATINAMIN [Concomitant]
     Indication: PROPHYLAXIS
     Route: 061
     Dates: start: 20091013
  14. GASMOTIN [Concomitant]
     Indication: PROPHYLAXIS
     Route: 048
     Dates: start: 20091013
  15. OPSO [Concomitant]
     Route: 048
     Dates: start: 20091013
  16. UNASYN [Concomitant]
     Route: 042
     Dates: start: 20091014, end: 20091110
  17. SOLITA-T NO.3 [Concomitant]
     Route: 042
     Dates: start: 20091014, end: 20091111
  18. RANOBIS [Concomitant]
     Route: 042
     Dates: start: 20091014, end: 20091111
  19. RANOBI [Concomitant]
     Route: 042
     Dates: start: 20091014, end: 20091111
  20. REPTILASE [Concomitant]
     Route: 042
     Dates: start: 20091014, end: 20091111
  21. LOPEMIN [Concomitant]
     Indication: DIARRHOEA
     Route: 048
     Dates: start: 20091229
  22. TANNALBIN [Concomitant]
     Indication: DIARRHOEA
     Route: 048
     Dates: start: 20100112
  23. ADSORBIN [Concomitant]
     Indication: DIARRHOEA
     Route: 048
     Dates: start: 20100112
  24. LACTOMIN [Concomitant]
     Indication: DIARRHOEA
     Route: 048
     Dates: start: 20100112

REACTIONS (9)
  - ARRHYTHMIA [None]
  - DIARRHOEA [None]
  - DRUG EFFECT DECREASED [None]
  - HAEMOPTYSIS [None]
  - NAUSEA [None]
  - PLATELET COUNT DECREASED [None]
  - PNEUMONIA [None]
  - STOMATITIS [None]
  - WHITE BLOOD CELL COUNT DECREASED [None]
